FAERS Safety Report 6256845-9 (Version None)
Quarter: 2009Q3

REPORT INFORMATION
  Report Type: 
  Country: None (occurrence: None)
  Receive Date: 20090706
  Receipt Date: 20090623
  Transmission Date: 20100115
  Serious: Yes (Other)
  Sender: FDA-Public Use
  Company Number: PHEH2009US01397

PATIENT
  Sex: Male

DRUGS (2)
  1. ZOMETA [Suspect]
     Indication: MULTIPLE MYELOMA
     Dosage: UNK
     Dates: end: 20050101
  2. AREDIA [Suspect]
     Indication: MULTIPLE MYELOMA
     Dosage: UNK
     Dates: start: 19960101

REACTIONS (15)
  - ANXIETY [None]
  - DEEP VEIN THROMBOSIS [None]
  - DEFORMITY [None]
  - INJURY [None]
  - MASTICATION DISORDER [None]
  - NEUROPATHY PERIPHERAL [None]
  - ORTHOSTATIC HYPOTENSION [None]
  - OSTEONECROSIS [None]
  - PAIN [None]
  - PLASMACYTOMA [None]
  - PURULENT DISCHARGE [None]
  - SENSORY LOSS [None]
  - STEM CELL TRANSPLANT [None]
  - SWELLING FACE [None]
  - ULCER [None]
